FAERS Safety Report 7246859-4 (Version None)
Quarter: 2011Q1

REPORT INFORMATION
  Report Type: 
  Country: None (occurrence: None)
  Receive Date: 20110127
  Receipt Date: 20110120
  Transmission Date: 20110831
  Serious: Yes (Death)
  Sender: FDA-Public Use
  Company Number: PHHY2010CA85833

PATIENT
  Sex: Male

DRUGS (17)
  1. ACLASTA [Suspect]
     Indication: OSTEOPOROSIS
     Dosage: 5 MG
     Dates: start: 20100112, end: 20100819
  2. VITAMIN B-12 [Concomitant]
     Dosage: 1 MG/ML
     Dates: start: 20070725
  3. LOPROX [Concomitant]
     Dosage: UNK
     Dates: start: 20060907
  4. CALCITE [Concomitant]
     Dosage: UNK
     Dates: start: 20070823
  5. PANTOLOC [Concomitant]
     Dosage: 40 MG
     Dates: start: 20070823
  6. COUMADIN [Concomitant]
     Dosage: 5 MG
     Dates: start: 20070808
  7. EMO CORT [Concomitant]
     Dosage: UNK
     Dates: start: 20060907
  8. EXELON [Concomitant]
     Dosage: 6 MG
     Dates: start: 20070822
  9. CELEXA [Concomitant]
     Dosage: 20 MG
     Dates: start: 20070823
  10. COMBIVENT [Concomitant]
     Dosage: UNK
     Dates: start: 20070309
  11. APO-SOTALOL [Concomitant]
     Dosage: 80 MG
     Dates: start: 20070823
  12. EXELON [Concomitant]
     Dosage: 4.5 MG
     Dates: start: 20070822
  13. OXAZEPAM [Concomitant]
     Dosage: 10 MG
     Dates: start: 20070823
  14. DESYREL [Concomitant]
     Dosage: 50 MG
     Dates: start: 20070823
  15. DIOVAN [Concomitant]
     Dosage: 80 MG
     Dates: start: 20070823
  16. RIVASA [Concomitant]
     Dosage: 80 MG
     Dates: start: 20070823
  17. SPECTRO JEL [Concomitant]
     Dosage: UNK
     Dates: start: 20080907

REACTIONS (1)
  - MYOCARDIAL INFARCTION [None]
